FAERS Safety Report 6821153-1 (Version None)
Quarter: 2010Q3

REPORT INFORMATION
  Report Type: 
  Country: None (occurrence: None)
  Receive Date: 20100707
  Receipt Date: 20080326
  Transmission Date: 20110219
  Serious: No
  Sender: FDA-Public Use
  Company Number: US-PFIZER INC-2008010878

PATIENT
  Sex: Female

DRUGS (3)
  1. ZOLOFT [Suspect]
     Indication: ANXIETY
     Route: 048
     Dates: start: 20071226
  2. ZOLOFT [Suspect]
     Indication: PANIC ATTACK
  3. ATIVAN [Concomitant]
     Dates: start: 20071226

REACTIONS (3)
  - ANXIETY [None]
  - NERVOUSNESS [None]
  - POOR QUALITY DRUG ADMINISTERED [None]
